FAERS Safety Report 16411283 (Version 2)
Quarter: 2019Q3

REPORT INFORMATION
  Report Type: Report from Study
  Country: DE (occurrence: DE)
  Receive Date: 20190610
  Receipt Date: 20190703
  Transmission Date: 20191004
  Serious: No
  Sender: FDA-Public Use
  Company Number: DE-AMGEN-DEUNI2019088619

PATIENT
  Age: 62 Year
  Sex: Male
  Weight: 127 kg

DRUGS (16)
  1. IRINOTECAN [Suspect]
     Active Substance: IRINOTECAN
     Indication: COLORECTAL CANCER METASTATIC
     Dosage: 380 MILLIGRAM
     Route: 065
     Dates: start: 20190515
  2. TOUJEO [Concomitant]
     Active Substance: INSULIN GLARGINE
     Indication: DIABETES MELLITUS
     Dosage: 1 UNK, QD
     Route: 058
  3. ASPIRIN [ACETYLSALICYLIC ACID] [Concomitant]
     Active Substance: ASPIRIN
     Indication: PAIN
     Dosage: 100 MILLIGRAM, QD
     Route: 048
  4. PANITUMUMAB [Suspect]
     Active Substance: PANITUMUMAB
     Indication: COLORECTAL CANCER METASTATIC
     Dosage: 600 MILLIGRAM
     Route: 042
     Dates: start: 20190515
  5. IRINOTECAN [Suspect]
     Active Substance: IRINOTECAN
     Dosage: 285 MILLIGRAM
     Route: 065
     Dates: start: 20190625
  6. RAMIPRIL BETA COMP [Concomitant]
     Indication: ANGIOTENSIN CONVERTING ENZYME
     Dosage: 1 UNK (2.5 MILLIGRAM/12.5 MILLIGRAM/-5 MILLIGRAM/25 MILLIGRAM), QD
     Route: 048
  7. ACTOS [Concomitant]
     Active Substance: PIOGLITAZONE HYDROCHLORIDE
     Indication: DIABETES MELLITUS
     Dosage: 45 MILLIGRAM, QD
     Route: 048
  8. LERCANIDIPINE [LERCANIDIPINE HYDROCHLORIDE] [Concomitant]
     Active Substance: LERCANIDIPINE HYDROCHLORIDE
     Indication: HYPERTENSION
     Dosage: 10 MILLIGRAM, QD
     Route: 048
  9. ATORVASTATIN [Concomitant]
     Active Substance: ATORVASTATIN
     Indication: HYPERCHOLESTEROLAEMIA
     Dosage: 80 MILLIGRAM, QD
     Route: 048
  10. METFORMIN [Concomitant]
     Active Substance: METFORMIN HYDROCHLORIDE
     Indication: DIABETES MELLITUS
     Dosage: 1000 MILLIGRAM, BID
     Route: 048
  11. LIPROLOG [Concomitant]
     Active Substance: INSULIN LISPRO
     Indication: DIABETES MELLITUS
     Dosage: 1 UNK, QD
     Route: 058
  12. ALLOPURINOL-RATIOPHARM [Concomitant]
     Active Substance: ALLOPURINOL
     Indication: HYPERURICAEMIA
     Dosage: 100 MILLIGRAM, QD
     Route: 048
  13. FOLINIC ACID [Suspect]
     Active Substance: LEUCOVORIN
     Indication: COLORECTAL CANCER METASTATIC
     Dosage: 850 MILLIGRAM
     Route: 065
     Dates: start: 20190515
  14. FLUOROURACIL. [Suspect]
     Active Substance: FLUOROURACIL
     Dosage: 5110 MILLIGRAM
     Route: 042
     Dates: start: 20190515
  15. BISOPROLOL-RATIOPHARM [Concomitant]
     Active Substance: BISOPROLOL
     Indication: HYPERTENSION
     Dosage: 5 MILLIGRAM, QD
     Route: 048
  16. FLUOROURACIL. [Suspect]
     Active Substance: FLUOROURACIL
     Indication: COLORECTAL CANCER METASTATIC
     Dosage: 850 MILLIGRAM
     Route: 040
     Dates: start: 20190515

REACTIONS (5)
  - Stomatitis [Unknown]
  - Fatigue [Unknown]
  - Nausea [Unknown]
  - Dermatitis acneiform [Unknown]
  - Diarrhoea [Unknown]

NARRATIVE: CASE EVENT DATE: 20190529
